FAERS Safety Report 12695650 (Version 2)
Quarter: 2016Q4

REPORT INFORMATION
  Report Type: Spontaneous
  Country: KR (occurrence: KR)
  Receive Date: 20160829
  Receipt Date: 20161013
  Transmission Date: 20170207
  Serious: Yes (Hospitalization)
  Sender: FDA-Public Use
  Company Number: KR-SA-2016SA153133

PATIENT
  Age: 71 Year
  Sex: Male

DRUGS (4)
  1. PRAMIPEXOLE. [Concomitant]
     Active Substance: PRAMIPEXOLE
     Route: 065
  2. STILNOX [Suspect]
     Active Substance: ZOLPIDEM TARTRATE
     Indication: SLEEP APNOEA SYNDROME
     Route: 048
  3. STILNOX [Suspect]
     Active Substance: ZOLPIDEM TARTRATE
     Indication: PERIODIC LIMB MOVEMENT DISORDER
     Route: 048
  4. ATIVAN [Concomitant]
     Active Substance: LORAZEPAM
     Route: 065

REACTIONS (4)
  - Anterograde amnesia [Recovered/Resolved]
  - Therapeutic response decreased [Unknown]
  - Abnormal sleep-related event [Recovered/Resolved]
  - Sleep-related eating disorder [Recovered/Resolved]
